FAERS Safety Report 13672914 (Version 2)
Quarter: 2017Q3

REPORT INFORMATION
  Report Type: Spontaneous
  Country: US (occurrence: US)
  Receive Date: 20170621
  Receipt Date: 20170807
  Transmission Date: 20171127
  Serious: No
  Sender: FDA-Public Use
  Company Number: US-009507513-1706USA002187

PATIENT
  Sex: Female
  Weight: 66.67 kg

DRUGS (1)
  1. NEXPLANON [Suspect]
     Active Substance: ETONOGESTREL
     Indication: CONTRACEPTION
     Dosage: 1 DF, EVERY 3 YEARS
     Route: 059
     Dates: start: 20140923

REACTIONS (7)
  - Menorrhagia [Unknown]
  - Headache [Unknown]
  - Hypoaesthesia [Unknown]
  - Fatigue [Unknown]
  - Amenorrhoea [Unknown]
  - Mood swings [Unknown]
  - Poor quality sleep [Unknown]
